FAERS Safety Report 9737219 (Version 11)
Quarter: 2019Q2

REPORT INFORMATION
  Report Type: Report from Study
  Country: CA (occurrence: CA)
  Receive Date: 20131206
  Receipt Date: 20190605
  Transmission Date: 20190711
  Serious: Yes (Hospitalization, Other)
  Sender: FDA-Public Use
  Company Number: CA-ROCHE-1312840

PATIENT
  Age: 61 Year
  Sex: Female
  Weight: 123.5 kg

DRUGS (13)
  1. METHYLPREDNISOLONE. [Concomitant]
     Active Substance: METHYLPREDNISOLONE
     Indication: PREMEDICATION
     Route: 042
     Dates: start: 20120525
  2. METHOTREXATE. [Concomitant]
     Active Substance: METHOTREXATE
  3. METOPROLOL. [Concomitant]
     Active Substance: METOPROLOL
  4. RITUXAN [Suspect]
     Active Substance: RITUXIMAB
     Indication: RHEUMATOID ARTHRITIS
     Dosage: DOSE FREQUENCY: DAY 1 AND 15.?LAST DOSE OF RITUXAN: 14/JAN/2015
     Route: 042
     Dates: start: 20120525
  5. TYLENOL EXTRA STRENGTH [Concomitant]
     Active Substance: ACETAMINOPHEN
  6. DIPHENHYDRAMINE HCL [Concomitant]
     Active Substance: DIPHENHYDRAMINE HYDROCHLORIDE
     Indication: PREMEDICATION
     Route: 048
     Dates: start: 20120525
  7. DIDROCAL [Concomitant]
     Active Substance: CALCIUM CARBONATE\ETIDRONATE DISODIUM
     Route: 065
     Dates: end: 2013
  8. ARTHROTEC [Suspect]
     Active Substance: DICLOFENAC SODIUM\MISOPROSTOL
     Indication: PRODUCT USED FOR UNKNOWN INDICATION
     Route: 065
     Dates: end: 2013
  9. BISOPROLOL [Suspect]
     Active Substance: BISOPROLOL
     Indication: PRODUCT USED FOR UNKNOWN INDICATION
     Route: 065
  10. ACETAMINOPHEN. [Concomitant]
     Active Substance: ACETAMINOPHEN
     Route: 048
     Dates: start: 20160626
  11. ACETYLSALICYLIC ACID [Concomitant]
     Active Substance: ASPIRIN
     Route: 065
  12. ACETAMINOPHEN. [Concomitant]
     Active Substance: ACETAMINOPHEN
     Indication: PREMEDICATION
     Route: 048
     Dates: start: 20120525, end: 20150114
  13. PREDNISONE. [Concomitant]
     Active Substance: PREDNISONE

REACTIONS (16)
  - Stress [Unknown]
  - Cough [Recovering/Resolving]
  - Vomiting [Unknown]
  - Feeling abnormal [Unknown]
  - Blood pressure fluctuation [Unknown]
  - Blood pressure diastolic decreased [Unknown]
  - Atrial fibrillation [Not Recovered/Not Resolved]
  - Dyspnoea [Unknown]
  - Transient ischaemic attack [Unknown]
  - Atrial fibrillation [Not Recovered/Not Resolved]
  - Loss of consciousness [Recovered/Resolved]
  - Immunodeficiency [Unknown]
  - Weight increased [Unknown]
  - Dementia [Unknown]
  - Mood swings [Unknown]
  - Nasal congestion [Recovering/Resolving]

NARRATIVE: CASE EVENT DATE: 201311
